FAERS Safety Report 15814231 (Version 1)
Quarter: 2019Q1

REPORT INFORMATION
  Report Type: Spontaneous
  Country: US (occurrence: US)
  Receive Date: 20190111
  Receipt Date: 20190111
  Transmission Date: 20190417
  Serious: No
  Sender: FDA-Public Use
  Company Number: US-JAZZ-2018-US-013584

PATIENT
  Age: 71 Year
  Sex: Male

DRUGS (3)
  1. MORPHINE [Suspect]
     Active Substance: MORPHINE
     Indication: SPINAL PAIN
     Dosage: UNK MG, UNK
     Route: 037
  2. PRIALT [Suspect]
     Active Substance: ZICONOTIDE ACETATE
     Indication: SPINAL PAIN
     Dosage: UNK ?G, QH
     Route: 037
  3. CLONIDINE. [Suspect]
     Active Substance: CLONIDINE
     Indication: SPINAL PAIN
     Dosage: UNK ?G, UNK
     Route: 037

REACTIONS (2)
  - Drug ineffective [Not Recovered/Not Resolved]
  - Breakthrough pain [Unknown]

NARRATIVE: CASE EVENT DATE: 201806
